FAERS Safety Report 21926264 (Version 2)
Quarter: 2023Q1

REPORT INFORMATION
  Report Type: Report from Study
  Country: US (occurrence: US)
  Receive Date: 20230130
  Receipt Date: 20230220
  Transmission Date: 20230417
  Serious: Yes (Hospitalization)
  Sender: FDA-Public Use
  Company Number: US-SERVIER-S23000713

PATIENT

DRUGS (63)
  1. DEXAMETHASONE [Concomitant]
     Active Substance: DEXAMETHASONE
     Indication: Acute lymphocytic leukaemia
     Dosage: 10 MG, BID
     Route: 048
     Dates: start: 20220715, end: 20220721
  2. DEXAMETHASONE [Concomitant]
     Active Substance: DEXAMETHASONE
     Dosage: 5 MG/M2, OTHER
     Route: 048
     Dates: start: 20220729, end: 20220804
  3. CYCLOPHOSPHAMIDE [Concomitant]
     Active Substance: CYCLOPHOSPHAMIDE
     Indication: Acute lymphocytic leukaemia
     Dosage: 1950 MG, QD
     Route: 042
     Dates: start: 20220822, end: 20220822
  4. CYCLOPHOSPHAMIDE [Concomitant]
     Active Substance: CYCLOPHOSPHAMIDE
     Dosage: 1950 MG, QD
     Route: 042
     Dates: start: 20220921, end: 20220921
  5. VINCRISTINE [Concomitant]
     Active Substance: VINCRISTINE
     Indication: Acute lymphocytic leukaemia
     Dosage: 2 MG, QD
     Route: 042
     Dates: start: 20220715, end: 20220715
  6. VINCRISTINE [Concomitant]
     Active Substance: VINCRISTINE
     Dosage: 2 MG, QD
     Route: 042
     Dates: start: 20220722, end: 20220722
  7. VINCRISTINE [Concomitant]
     Active Substance: VINCRISTINE
     Dosage: 2 MG, QD
     Route: 042
     Dates: start: 20220729, end: 20220729
  8. VINCRISTINE [Concomitant]
     Active Substance: VINCRISTINE
     Dosage: 2 MG, QD
     Route: 042
     Dates: start: 20220805, end: 20220805
  9. VINCRISTINE [Concomitant]
     Active Substance: VINCRISTINE
     Dosage: 2 MG, QD
     Route: 042
     Dates: start: 20220906, end: 20220906
  10. VINCRISTINE [Concomitant]
     Active Substance: VINCRISTINE
     Dosage: 2 MG, QD
     Route: 042
     Dates: start: 20220912, end: 20220912
  11. VINCRISTINE [Concomitant]
     Active Substance: VINCRISTINE
     Dosage: 1 MG, OTHER
     Route: 042
     Dates: start: 20221010, end: 20221010
  12. VINCRISTINE [Concomitant]
     Active Substance: VINCRISTINE
     Dosage: 2 MG, OTHER
     Route: 042
     Dates: start: 20221017, end: 20221017
  13. VINCRISTINE [Concomitant]
     Active Substance: VINCRISTINE
     Dosage: 1.5 MG, QD
     Route: 042
     Dates: start: 20221107, end: 20221107
  14. VINCRISTINE [Concomitant]
     Active Substance: VINCRISTINE
     Dosage: 1 MG, QD
     Route: 042
     Dates: start: 20221117, end: 20221117
  15. VINCRISTINE [Concomitant]
     Active Substance: VINCRISTINE
     Dosage: 1 MG, QD
     Route: 042
     Dates: start: 20221207, end: 20221207
  16. VINCRISTINE [Concomitant]
     Active Substance: VINCRISTINE
     Dosage: 2 MG, QD
     Route: 042
     Dates: start: 20221219, end: 20221219
  17. VINCRISTINE [Concomitant]
     Active Substance: VINCRISTINE
     Dosage: 2 MG, QD
     Route: 042
     Dates: start: 20230106, end: 20230106
  18. VINCRISTINE [Concomitant]
     Active Substance: VINCRISTINE
     Dosage: 2 MG, QD
     Route: 042
     Dates: start: 20230113, end: 20230113
  19. DOXORUBICIN [Concomitant]
     Active Substance: DOXORUBICIN
     Indication: Acute lymphocytic leukaemia
     Dosage: 49.2 MG, QD
     Route: 042
     Dates: start: 20230106, end: 20230106
  20. DOXORUBICIN [Concomitant]
     Active Substance: DOXORUBICIN
     Dosage: 49.2 MG, QD
     Route: 042
     Dates: start: 20230113, end: 20230113
  21. CYTARABINE [Concomitant]
     Active Substance: CYTARABINE
     Indication: Acute lymphocytic leukaemia
     Dosage: 70 MG, QD
     Route: 037
     Dates: start: 20220715, end: 20220715
  22. CYTARABINE [Concomitant]
     Active Substance: CYTARABINE
     Dosage: 146 MG, OTHER
     Route: 042
     Dates: start: 20220822, end: 20220825
  23. CYTARABINE [Concomitant]
     Active Substance: CYTARABINE
     Dosage: 146 MG, OTHER
     Route: 042
     Dates: start: 20220829, end: 20220901
  24. CYTARABINE [Concomitant]
     Active Substance: CYTARABINE
     Dosage: 146 MG, OTHER
     Route: 042
     Dates: start: 20220921, end: 20220924
  25. CYTARABINE [Concomitant]
     Active Substance: CYTARABINE
     Dosage: 146 MG, OTHER
     Route: 042
     Dates: start: 20221003, end: 20221006
  26. MERCAPTOPURINE [Concomitant]
     Active Substance: MERCAPTOPURINE
     Indication: Acute lymphocytic leukaemia
     Dosage: 100 MG, OTHER
     Route: 048
     Dates: start: 20220822, end: 20220905
  27. MERCAPTOPURINE [Concomitant]
     Active Substance: MERCAPTOPURINE
     Dosage: 100 MG, OTHER
     Route: 048
     Dates: start: 20220921, end: 20221002
  28. MERCAPTOPURINE [Concomitant]
     Active Substance: MERCAPTOPURINE
     Dosage: 50 MG, OTHER
     Route: 048
     Dates: start: 20221003, end: 20221009
  29. DAUNORUBICIN [Concomitant]
     Active Substance: DAUNORUBICIN
     Indication: Acute lymphocytic leukaemia
     Dosage: 48 MG, QD
     Route: 042
     Dates: start: 20220715, end: 20220715
  30. DAUNORUBICIN [Concomitant]
     Active Substance: DAUNORUBICIN
     Dosage: 48 MG, QD
     Route: 042
     Dates: start: 20220722, end: 20220722
  31. DAUNORUBICIN [Concomitant]
     Active Substance: DAUNORUBICIN
     Dosage: 48 MG, QD
     Route: 042
     Dates: start: 20220729, end: 20220729
  32. DAUNORUBICIN [Concomitant]
     Active Substance: DAUNORUBICIN
     Dosage: 48 MG, QD
     Route: 042
     Dates: start: 20220805, end: 20220805
  33. METHOTREXATE [Concomitant]
     Active Substance: METHOTREXATE
     Indication: Acute lymphocytic leukaemia
     Dosage: 15 MG, QD
     Route: 037
     Dates: start: 20220722, end: 20220722
  34. METHOTREXATE [Concomitant]
     Active Substance: METHOTREXATE
     Dosage: 15 MG, QD
     Route: 037
     Dates: start: 20220812, end: 20220812
  35. METHOTREXATE [Concomitant]
     Active Substance: METHOTREXATE
     Dosage: 15 MG, QD
     Route: 037
     Dates: start: 20220824, end: 20220824
  36. METHOTREXATE [Concomitant]
     Active Substance: METHOTREXATE
     Dosage: 15 MG, QD
     Route: 037
     Dates: start: 20220912, end: 20220912
  37. METHOTREXATE [Concomitant]
     Active Substance: METHOTREXATE
     Dosage: 195 MG, QD
     Route: 042
     Dates: start: 20221107, end: 20221107
  38. METHOTREXATE [Concomitant]
     Active Substance: METHOTREXATE
     Dosage: 293 MG, QD
     Route: 042
     Dates: start: 20221117, end: 20221117
  39. METHOTREXATE [Concomitant]
     Active Substance: METHOTREXATE
     Dosage: 390 MG, QD
     Route: 042
     Dates: start: 20221128, end: 20221128
  40. METHOTREXATE [Concomitant]
     Active Substance: METHOTREXATE
     Dosage: 390 MG, QD
     Route: 042
     Dates: start: 20221207, end: 20221207
  41. METHOTREXATE [Concomitant]
     Active Substance: METHOTREXATE
     Dosage: 15 MG, QD
     Route: 037
     Dates: start: 20221214, end: 20221214
  42. METHOTREXATE [Concomitant]
     Active Substance: METHOTREXATE
     Dosage: 390 MG, QD
     Route: 042
     Dates: start: 20221219, end: 20221219
  43. ACETAMINOPHEN [Concomitant]
     Active Substance: ACETAMINOPHEN
     Indication: Pyrexia
     Dosage: 1000 MG, OTHER
     Route: 048
     Dates: start: 20220420
  44. ACETAMINOPHEN [Concomitant]
     Active Substance: ACETAMINOPHEN
     Indication: Arthralgia
  45. ACETAMINOPHEN [Concomitant]
     Active Substance: ACETAMINOPHEN
     Indication: Headache
  46. METOPROLOL TARTRATE [Concomitant]
     Active Substance: METOPROLOL TARTRATE
     Indication: Sinus tachycardia
     Dosage: 50 MG, BID
     Route: 048
     Dates: start: 20220710
  47. METOPROLOL TARTRATE [Concomitant]
     Active Substance: METOPROLOL TARTRATE
     Indication: Hypertension
  48. CARBOXYMETHYLCELLULOSE [Concomitant]
     Active Substance: CARBOXYMETHYLCELLULOSE
     Indication: Dry eye
     Dosage: 1 GTT, OTHER
     Route: 065
     Dates: start: 20220716
  49. ZINC OXIDE [Concomitant]
     Active Substance: ZINC OXIDE
     Indication: Haemorrhoids
     Dosage: 20 %, OTHER
     Route: 054
     Dates: start: 20220923
  50. PANTOPRAZOLE [Concomitant]
     Active Substance: PANTOPRAZOLE
     Indication: Gastrooesophageal reflux disease
     Dosage: 40 MG, QD
     Route: 048
     Dates: start: 20221118
  51. LOPERAMIDE [Concomitant]
     Active Substance: LOPERAMIDE
     Indication: Diarrhoea
     Dosage: 2 MG, OTHER
     Route: 048
     Dates: start: 20221122
  52. DICYCLOMINE HYDROCHLORIDE [Concomitant]
     Active Substance: DICYCLOMINE HYDROCHLORIDE
     Indication: Abdominal pain
     Dosage: 20 MG, OTHER
     Route: 048
     Dates: start: 20221227
  53. MELATONIN [Concomitant]
     Active Substance: MELATONIN
     Indication: Insomnia
     Dosage: 3 MG, OTHER
     Route: 048
     Dates: start: 20221228
  54. LORAZEPAM [Concomitant]
     Active Substance: LORAZEPAM
     Indication: Nausea
     Dosage: 0.5 MG, OTHER
     Route: 048
     Dates: start: 20230109
  55. FILGRASTIM [Concomitant]
     Active Substance: FILGRASTIM
     Indication: Neutropenia
     Dosage: 300 ?G, QD
     Route: 051
     Dates: start: 20230117
  56. SODIUM CHLORIDE [Concomitant]
     Active Substance: SODIUM CHLORIDE
     Indication: Dehydration
     Dosage: 0.9 %, QD
     Route: 051
     Dates: start: 20230117
  57. LEVOFLOXACIN [Concomitant]
     Active Substance: LEVOFLOXACIN
     Indication: Infection prophylaxis
     Dosage: 500 MG, QD
     Route: 048
     Dates: start: 20230117
  58. VALACYCLOVIR [Concomitant]
     Active Substance: VALACYCLOVIR HYDROCHLORIDE
     Indication: Herpes simplex
     Dosage: 1000 MG, BID
     Route: 048
     Dates: start: 20230119
  59. NYSTATIN [Concomitant]
     Active Substance: NYSTATIN
     Indication: Stomatitis
     Dosage: 2 ML, QID
     Route: 048
     Dates: start: 20230119
  60. CHLORHEXIDINE [Concomitant]
     Active Substance: CHLORHEXIDINE
     Indication: Stomatitis
     Dosage: 15 ML, TID
     Route: 048
     Dates: start: 20230119
  61. FLUCONAZOLE [Concomitant]
     Active Substance: FLUCONAZOLE
     Indication: Infection prophylaxis
     Dosage: 400 MG, BID
     Route: 048
     Dates: start: 20230119
  62. LEVOCARNITINE [Concomitant]
     Active Substance: LEVOCARNITINE
     Indication: Blood bilirubin increased
     Dosage: 330 MG, BID
     Route: 048
     Dates: start: 20230120
  63. VITAMIN B COMPLEX [Concomitant]
     Active Substance: CYANOCOBALAMIN\DEXPANTHENOL\NIACINAMIDE\PYRIDOXINE HYDROCHLORIDE\RIBOFLAVIN 5^-PHOSPHATE SODIUM\THIA
     Indication: Supplementation therapy
     Dosage: UNK, QD
     Route: 048
     Dates: start: 20230120

REACTIONS (1)
  - Stomatitis [Not Recovered/Not Resolved]

NARRATIVE: CASE EVENT DATE: 20230119
